FAERS Safety Report 14032869 (Version 1)
Quarter: 2017Q4

REPORT INFORMATION
  Report Type: Spontaneous
  Country: FR (occurrence: FR)
  Receive Date: 20171003
  Receipt Date: 20171003
  Transmission Date: 20180321
  Serious: Yes (Other)
  Sender: FDA-Public Use
  Company Number: FR-JNJFOC-20170930603

PATIENT
  Sex: Female

DRUGS (1)
  1. XARELTO [Suspect]
     Active Substance: RIVAROXABAN
     Indication: PRODUCT USED FOR UNKNOWN INDICATION
     Route: 048
     Dates: start: 20170509, end: 20170730

REACTIONS (9)
  - Oedema peripheral [Unknown]
  - Skin ulcer [Unknown]
  - Peripheral swelling [Unknown]
  - Hypersensitivity [Unknown]
  - Amnesia [Unknown]
  - Muscle spasms [Unknown]
  - Limb injury [Unknown]
  - Thrombosis [Unknown]
  - Pruritus generalised [Unknown]
